FAERS Safety Report 8144738-1 (Version None)
Quarter: 2012Q1

REPORT INFORMATION
  Report Type: 
  Country: None (occurrence: None)
  Receive Date: 20120217
  Receipt Date: 20120209
  Transmission Date: 20120608
  Serious: Yes (Other)
  Sender: FDA-Public Use
  Company Number: US-US-EMD SERONO, INC.-7112481

PATIENT
  Sex: Female
  Weight: 70 kg

DRUGS (10)
  1. CALCIUM [Concomitant]
  2. REBIF [Suspect]
     Route: 058
     Dates: start: 20060101
  3. BUPROPION HYDROCHLORIDE [Concomitant]
  4. RESTASIS EMU [Concomitant]
  5. BACLOFEN [Concomitant]
  6. REBIF [Suspect]
     Indication: PRODUCT USED FOR UNKNOWN INDICATION
     Dates: start: 20050101
  7. AMANTADINE HCL [Concomitant]
  8. ALENDRONATE SODIUM [Concomitant]
  9. GABAPENTIN [Concomitant]
  10. FISH OIL [Concomitant]

REACTIONS (2)
  - PLATELET COUNT DECREASED [None]
  - GRAND MAL CONVULSION [None]
